FAERS Safety Report 13927921 (Version 1)
Quarter: 2017Q3

REPORT INFORMATION
  Report Type: Report from Study
  Country: US (occurrence: US)
  Receive Date: 20170901
  Receipt Date: 20170901
  Transmission Date: 20171127
  Serious: Yes (Other)
  Sender: FDA-Public Use
  Company Number: US-AMGEN-USASL2017130931

PATIENT
  Age: 66 Year
  Sex: Female

DRUGS (1)
  1. ENBREL [Suspect]
     Active Substance: ETANERCEPT
     Indication: RHEUMATOID ARTHRITIS
     Dosage: UNK
     Route: 065

REACTIONS (11)
  - Acute kidney injury [Unknown]
  - Bedridden [Not Recovered/Not Resolved]
  - Gait inability [Unknown]
  - Sepsis [Unknown]
  - Platelet count increased [Unknown]
  - Rheumatoid arthritis [Unknown]
  - Blood sodium decreased [Unknown]
  - Pneumonia [Unknown]
  - Lung disorder [Unknown]
  - Haemoptysis [Unknown]
  - Haemorrhagic anaemia [Unknown]
